FAERS Safety Report 8588098-0 (Version None)
Quarter: 2012Q3

REPORT INFORMATION
  Report Type: 
  Country: None (occurrence: None)
  Receive Date: 20120731
  Receipt Date: 20120719
  Transmission Date: 20120928
  Serious: Yes (Other)
  Sender: FDA-Public Use
  Company Number: 1355269

PATIENT
  Age: 46 Year
  Sex: Female

DRUGS (1)
  1. FENTANYL CITRATE [Suspect]
     Indication: PREOPERATIVE CARE
     Dosage: 250 MCE, ONCE   INTRAVENOUS NOT OTHERWISE SPECIFIED)
     Route: 042
     Dates: start: 20120719, end: 20120719

REACTIONS (1)
  - MYOCLONIC EPILEPSY [None]
